FAERS Safety Report 6398865-X (Version None)
Quarter: 2009Q4

REPORT INFORMATION
  Report Type: 
  Country: None (occurrence: None)
  Receive Date: 20091007
  Receipt Date: 20090921
  Transmission Date: 20100525
  Serious: Yes (Other)
  Sender: FDA-Public Use
  Company Number: 395063

PATIENT
  Age: 19 Year
  Sex: Male

DRUGS (4)
  1. (DEXMEDETOMIDINE) [Suspect]
     Indication: SEDATION
     Dosage: 1 MCG/KG/HR, INTRAVENOUS; 4 MCG/KG/HR, INTRAVENOUS
     Route: 042
     Dates: start: 20090917, end: 20090917
  2. ROPIVACAINE HYDROCHLORIDE [Concomitant]
  3. MIDAZOLAM HCL [Concomitant]
  4. SERTRALINE HCL [Concomitant]

REACTIONS (3)
  - HYPERHIDROSIS [None]
  - MOVEMENT DISORDER [None]
  - THERAPEUTIC RESPONSE DECREASED [None]
